FAERS Safety Report 7494019-4 (Version None)
Quarter: 2011Q2

REPORT INFORMATION
  Report Type: 
  Country: None (occurrence: None)
  Receive Date: 20110520
  Receipt Date: 20110518
  Transmission Date: 20111010
  Serious: Yes (Other)
  Sender: FDA-Public Use
  Company Number: US-PFIZER INC-2011107494

PATIENT
  Sex: Female
  Weight: 77.098 kg

DRUGS (4)
  1. CHANTIX [Suspect]
     Dosage: 1 MG, 2X/DAY
     Dates: start: 20110501, end: 20110516
  2. INSULIN [Concomitant]
     Dosage: UNK
  3. MAPROTILINE [Concomitant]
     Indication: DEPRESSION
     Dosage: UNK
  4. CHANTIX [Suspect]
     Indication: SMOKING CESSATION THERAPY
     Dosage: 0.5 MG, 1X/DAY
     Route: 048
     Dates: start: 20110501, end: 20110501

REACTIONS (2)
  - DEPRESSION [None]
  - DYSGEUSIA [None]
